FAERS Safety Report 8964441 (Version 2)
Quarter: 2013Q1

REPORT INFORMATION
  Report Type: Spontaneous
  Country: US (occurrence: US)
  Receive Date: 20121214
  Receipt Date: 20130102
  Transmission Date: 20140127
  Serious: Yes (Other)
  Sender: FDA-Public Use
  Company Number: US-PFIZER INC-2012314982

PATIENT
  Sex: Female

DRUGS (10)
  1. BUPIVACAINE HCL [Suspect]
     Indication: EPIDURAL ANALGESIA
     Dosage: 2.5 MG, UNK
     Route: 064
  2. EPINEPHRINE [Suspect]
     Dosage: 15 UG, UNK
     Route: 064
  3. FENTANYL [Suspect]
     Dosage: 25 UG, UNK
     Route: 064
  4. LIDOCAINE HCL [Suspect]
     Indication: EPIDURAL ANALGESIA
     Dosage: 3 ML, UNK
     Route: 064
  5. TERBUTALINE [Suspect]
     Dosage: 2.5 MG, UNK
     Route: 064
  6. CEFAZOLIN [Concomitant]
     Indication: INFECTION PROPHYLAXIS
     Dosage: 2 G, UNK
     Route: 064
  7. PROPOFOL [Concomitant]
     Dosage: 125 MG, UNK
     Route: 064
  8. SUCCINYLCHOLINE CHLORIDE [Concomitant]
     Dosage: 100 MG, UNK
     Route: 064
  9. SODIUM CITRATE [Concomitant]
     Dosage: 30 ML, UNK
     Route: 064
  10. RINGER LACTATE [Concomitant]

REACTIONS (2)
  - Maternal exposure timing unspecified [Recovered/Resolved]
  - Bradycardia foetal [Recovered/Resolved]
